FAERS Safety Report 9962750 (Version 2)
Quarter: 2014Q1

REPORT INFORMATION
  Report Type: Report from Study
  Country: US (occurrence: US)
  Receive Date: 20140305
  Receipt Date: 20140305
  Transmission Date: 20141002
  Serious: No
  Sender: FDA-Public Use
  Company Number: US-ABBVIE-13P-163-1069111-00

PATIENT
  Age: 30 Year
  Sex: Female
  Weight: 95.34 kg

DRUGS (2)
  1. HUMIRA [Suspect]
     Indication: RHEUMATOID ARTHRITIS
     Route: 058
     Dates: start: 2010, end: 20120901
  2. PRENATAL VITAMINS [Concomitant]
     Indication: PREGNANCY
     Dates: start: 201209

REACTIONS (5)
  - Vaginal haemorrhage [Recovered/Resolved]
  - Subchorionic haemorrhage [Recovered/Resolved]
  - Rheumatoid arthritis [Not Recovered/Not Resolved]
  - Arthralgia [Not Recovered/Not Resolved]
  - Subchorionic haemorrhage [Recovered/Resolved]
